FAERS Safety Report 8430330-8 (Version None)
Quarter: 2012Q2

REPORT INFORMATION
  Report Type: 
  Country: None (occurrence: None)
  Receive Date: 20120606
  Receipt Date: 20120606
  Transmission Date: 20120825
  Serious: Yes (Other)
  Sender: FDA-Public Use
  Company Number: None

PATIENT
  Sex: Male

DRUGS (1)
  1. CIMZIA [Suspect]
     Dosage: 200 MG INJECTABLE 400MG WEEK, 0,2,4
     Route: 042
     Dates: start: 20120522

REACTIONS (2)
  - SKIN REACTION [None]
  - INJECTION SITE REACTION [None]
